FAERS Safety Report 5080859-8 (Version None)
Quarter: 2006Q3

REPORT INFORMATION
  Report Type: 
  Country: None (occurrence: None)
  Receive Date: 20060811
  Receipt Date: 20060803
  Transmission Date: 20061208
  Serious: Yes (Other)
  Sender: FDA-Public Use
  Company Number: 2006094863

PATIENT
  Age: 35 Year
  Sex: Male

DRUGS (2)
  1. NORVASC [Suspect]
     Indication: DRUG USE FOR UNKNOWN INDICATION
  2. TOPROL-XL [Suspect]
     Indication: DRUG USE FOR UNKNOWN INDICATION

REACTIONS (2)
  - ORGAN TRANSPLANT [None]
  - RENAL FAILURE [None]
